FAERS Safety Report 7253549 (Version 4)
Quarter: 2014Q2

REPORT INFORMATION
  Report Type: Spontaneous
  Country: US (occurrence: US)
  Receive Date: 20100124
  Receipt Date: 20140425
  Transmission Date: 20141212
  Serious: Yes (Other)
  Sender: FDA-Public Use
  Company Number: US-ALEXION-A200901063

PATIENT
  Age: 31 Year
  Sex: Male
  Weight: 84.13 kg

DRUGS (7)
  1. SOLIRIS 300MG [Suspect]
     Indication: PAROXYSMAL NOCTURNAL HAEMOGLOBINURIA
     Dosage: 600 MG, QW X 4
     Route: 042
     Dates: start: 20091111, end: 20091202
  2. SOLIRIS 300MG [Suspect]
     Dosage: 900 MG, Q2W
     Route: 042
     Dates: start: 20091209
  3. METHADONE [Concomitant]
     Indication: PAIN
     Dosage: 15 MG, PRN
     Route: 048
  4. ADDERALL [Concomitant]
     Indication: ATTENTION DEFICIT/HYPERACTIVITY DISORDER
     Dosage: 10 MG, TID
     Route: 048
  5. MULTIVITAMIN                       /00831701/ [Concomitant]
     Dosage: UNK
     Route: 048
  6. FOLIC ACID [Concomitant]
     Dosage: 1 MG, QD
  7. TESTOSTERONE [Concomitant]
     Dosage: 200 MG, QMONTH

REACTIONS (12)
  - Haemoglobinuria [Unknown]
  - Blood pressure decreased [Unknown]
  - Dyspnoea [Unknown]
  - Dysphagia [Unknown]
  - Feeling abnormal [Not Recovered/Not Resolved]
  - Stress [Not Recovered/Not Resolved]
  - Upper respiratory tract infection [Unknown]
  - Fatigue [Not Recovered/Not Resolved]
  - Nasopharyngitis [Recovered/Resolved]
  - Arthralgia [Unknown]
  - Abdominal pain [Unknown]
  - Quality of life decreased [Unknown]
